FAERS Safety Report 10052339 (Version 1)
Quarter: 2014Q2

REPORT INFORMATION
  Report Type: Spontaneous
  Country: US (occurrence: None)
  Receive Date: 20140401
  Receipt Date: 20140401
  Transmission Date: 20141212
  Serious: Yes (Disabling)
  Sender: FDA-Public Use
  Company Number: None

PATIENT
  Age: 58 Year
  Sex: Female
  Weight: 86.18 kg

DRUGS (3)
  1. BUSPAR [Suspect]
     Indication: ANXIETY
     Dosage: 1 PILL
     Route: 048
  2. GLUCOSAMINE [Concomitant]
  3. CALCIUM [Concomitant]

REACTIONS (7)
  - Myalgia [None]
  - Arthralgia [None]
  - Joint stiffness [None]
  - Musculoskeletal stiffness [None]
  - Pain [None]
  - Gait disturbance [None]
  - Activities of daily living impaired [None]
